FAERS Safety Report 7514531-9 (Version None)
Quarter: 2011Q2

REPORT INFORMATION
  Report Type: 
  Country: None (occurrence: None)
  Receive Date: 20110601
  Receipt Date: 20101209
  Transmission Date: 20111010
  Serious: Yes (Hospitalization, Other)
  Sender: FDA-Public Use
  Company Number: US-BAYER-2010-004365

PATIENT
  Age: 27 Year
  Sex: Female
  Weight: 59 kg

DRUGS (2)
  1. YAZ [Suspect]
     Indication: ORAL CONTRACEPTION
     Route: 048
  2. YASMIN [Suspect]
     Indication: ORAL CONTRACEPTION
     Dosage: UNK
     Route: 048
     Dates: start: 20010101, end: 20080101

REACTIONS (2)
  - THROMBOSIS [None]
  - PAIN [None]
